FAERS Safety Report 25602258 (Version 1)
Quarter: 2025Q3

REPORT INFORMATION
  Report Type: Spontaneous
  Country: US (occurrence: None)
  Receive Date: 20250724
  Receipt Date: 20250724
  Transmission Date: 20251021
  Serious: Yes (Other)
  Sender: FDA-CTU
  Company Number: None

PATIENT
  Age: 45 Year
  Sex: Female
  Weight: 70.2 kg

DRUGS (6)
  1. MOUNJARO [Suspect]
     Active Substance: TIRZEPATIDE
     Indication: Type 2 diabetes mellitus
     Route: 058
     Dates: start: 20250409
  2. MOUNJARO [Suspect]
     Active Substance: TIRZEPATIDE
     Indication: Weight decreased
  3. LIPITOR [Concomitant]
     Active Substance: ATORVASTATIN CALCIUM
  4. LISINOPRIL [Concomitant]
     Active Substance: LISINOPRIL
  5. Centrum multivitamin [Concomitant]
  6. IRON [Concomitant]
     Active Substance: IRON

REACTIONS (6)
  - Abdominal discomfort [None]
  - Vomiting [None]
  - Diarrhoea [None]
  - Injection site erythema [None]
  - Injection site pruritus [None]
  - Injection site reaction [None]

NARRATIVE: CASE EVENT DATE: 20250719
